FAERS Safety Report 23922972 (Version 2)
Quarter: 2024Q2

REPORT INFORMATION
  Report Type: Spontaneous
  Country: US (occurrence: US)
  Receive Date: 20240531
  Receipt Date: 20240603
  Transmission Date: 20240716
  Serious: No
  Sender: FDA-Public Use
  Company Number: US-ELI_LILLY_AND_COMPANY-US202405017433

PATIENT
  Sex: Male

DRUGS (4)
  1. MOUNJARO [Suspect]
     Active Substance: TIRZEPATIDE
     Indication: Glycosylated haemoglobin abnormal
     Dosage: 7.5 MG, UNKNOWN
     Route: 065
     Dates: start: 20240525
  2. MOUNJARO [Suspect]
     Active Substance: TIRZEPATIDE
     Indication: Glycosylated haemoglobin abnormal
     Dosage: 7.5 MG, UNKNOWN
     Route: 065
     Dates: start: 20240525
  3. MOUNJARO [Suspect]
     Active Substance: TIRZEPATIDE
     Indication: Glycosylated haemoglobin abnormal
     Dosage: 7.5 MG, UNKNOWN
     Route: 065
     Dates: start: 20240525
  4. MOUNJARO [Suspect]
     Active Substance: TIRZEPATIDE
     Indication: Glycosylated haemoglobin abnormal
     Dosage: 7.5 MG, UNKNOWN
     Route: 065
     Dates: start: 20240525

REACTIONS (9)
  - Product prescribing error [Unknown]
  - Incorrect dose administered [Unknown]
  - Headache [Recovering/Resolving]
  - Paraesthesia [Recovering/Resolving]
  - Feeding disorder [Recovering/Resolving]
  - Gastrointestinal pain [Unknown]
  - Nausea [Recovering/Resolving]
  - Diarrhoea [Recovering/Resolving]
  - Vomiting [Recovering/Resolving]

NARRATIVE: CASE EVENT DATE: 20240525
